FAERS Safety Report 23259153 (Version 1)
Quarter: 2023Q4

REPORT INFORMATION
  Report Type: Spontaneous
  Country: JP (occurrence: JP)
  Receive Date: 20231204
  Receipt Date: 20231204
  Transmission Date: 20240109
  Serious: No
  Sender: FDA-Public Use
  Company Number: JP-HALOZYME THERAPEUTICS, INC.-2023-JP-TE -02518

PATIENT

DRUGS (1)
  1. TESTOSTERONE ENANTHATE [Suspect]
     Active Substance: TESTOSTERONE ENANTHATE
     Indication: Product used for unknown indication

REACTIONS (4)
  - Endometrial cancer stage III [None]
  - Ovarian mass [None]
  - Abdominal pain [None]
  - Vaginal haemorrhage [None]
